FAERS Safety Report 8816713 (Version 1)
Quarter: 2012Q4

REPORT INFORMATION
  Report Type: Spontaneous
  Country: US (occurrence: None)
  Receive Date: 20121001
  Receipt Date: 20121001
  Transmission Date: 20130627
  Serious: Yes (Other)
  Sender: FDA-Public Use
  Company Number: 1433368

PATIENT
  Age: 81 Year
  Sex: Male

DRUGS (5)
  1. VINCRISTINE SULFATE [Suspect]
     Indication: PERIPHERAL T-CELL LYMPHOMA UNSPECIFIED STAGE IV
  2. CYCLOPHOSPHAMIDE [Suspect]
     Indication: PERIPHERAL T-CELL LYMPHOMA UNSPECIFIED STAGE IV
  3. BEVACIZUMAB [Suspect]
     Indication: PERIPHERAL T-CELL LYMPHOMA UNSPECIFIED STAGE IV
  4. DOXORUBICIN [Suspect]
     Indication: PERIPHERAL T-CELL LYMPHOMA UNSPECIFIED STAGE IV
  5. PREDNISONE [Suspect]
     Indication: PERIPHERAL T-CELL LYMPHOMA UNSPECIFIED STAGE IV

REACTIONS (2)
  - Left ventricular dysfunction [None]
  - Cardiotoxicity [None]
